FAERS Safety Report 21241476 (Version 1)
Quarter: 2022Q3

REPORT INFORMATION
  Report Type: Other
  Country: US (occurrence: None)
  Receive Date: 20220823
  Receipt Date: 20220823
  Transmission Date: 20221027
  Serious: Yes (Death)
  Sender: FDA-Public Use
  Company Number: US-ROCHE-3165310

PATIENT
  Age: 82 Year
  Sex: Female
  Weight: 72.640 kg

DRUGS (1)
  1. RITUXAN [Suspect]
     Active Substance: RITUXIMAB
     Indication: Rheumatoid arthritis
     Dosage: 2 INFUSIONS 14 DAYS?  APART EVERY 4 MONTH(S)
     Route: 041
     Dates: start: 20110104, end: 20210809

REACTIONS (1)
  - Death [Fatal]

NARRATIVE: CASE EVENT DATE: 20211001
